FAERS Safety Report 4822185-5 (Version None)
Quarter: 2005Q4

REPORT INFORMATION
  Report Type: 
  Country: None (occurrence: None)
  Receive Date: 20051103
  Receipt Date: 20051021
  Transmission Date: 20060501
  Serious: Yes (Hospitalization)
  Sender: FDA-Public Use
  Company Number: 202115

PATIENT
  Age: 42 Year
  Sex: Female
  Weight: 99.7913 kg

DRUGS (5)
  1. AVONEX [Suspect]
     Indication: MULTIPLE SCLEROSIS
     Dosage: 30 UG; QW; IM
     Route: 030
     Dates: start: 20031101, end: 20040101
  2. AVONEX [Suspect]
     Dosage: 30 UG; QW; IM; SEE IMAGE
     Route: 030
     Dates: start: 20040101, end: 20040201
  3. AVONEX [Suspect]
     Dosage: 30 UG; QW; IM; SEE IMAGE
     Route: 030
     Dates: start: 20040301
  4. DURAGESIC-100 [Concomitant]
  5. KLONOPIN [Concomitant]

REACTIONS (17)
  - ANOREXIA [None]
  - BLOOD POTASSIUM DECREASED [None]
  - DEEP VEIN THROMBOSIS [None]
  - DIFFICULTY IN WALKING [None]
  - DYSPHAGIA [None]
  - DYSPNOEA [None]
  - GASTRIC INFECTION [None]
  - GASTROENTERITIS VIRAL [None]
  - HYPOAESTHESIA [None]
  - INJECTION SITE HAEMORRHAGE [None]
  - INJECTION SITE PAIN [None]
  - LUNG DISORDER [None]
  - OESOPHAGEAL STENOSIS [None]
  - PAIN IN EXTREMITY [None]
  - UTERINE POLYP [None]
  - VOMITING [None]
  - WEIGHT DECREASED [None]
